FAERS Safety Report 10222658 (Version 1)
Quarter: 2014Q2

REPORT INFORMATION
  Report Type: Report from Study
  Country: ZA (occurrence: ZA)
  Receive Date: 20140606
  Receipt Date: 20140606
  Transmission Date: 20141212
  Serious: Yes (Death)
  Sender: FDA-Public Use
  Company Number: ZA-ASTRAZENECA-2014SE39645

PATIENT
  Age: 29262 Day
  Sex: Male

DRUGS (2)
  1. SYMBICORD [Suspect]
     Indication: CHRONIC OBSTRUCTIVE PULMONARY DISEASE
     Dosage: 160/4.5 UNKNOWN FREQUENCY
     Route: 055
  2. OXYGEN [Concomitant]

REACTIONS (2)
  - Death [Fatal]
  - Pain [Unknown]
